FAERS Safety Report 7012873-7 (Version None)
Quarter: 2010Q3

REPORT INFORMATION
  Report Type: 
  Country: None (occurrence: None)
  Receive Date: 20100915
  Receipt Date: 20100326
  Transmission Date: 20110219
  Serious: Yes (Other)
  Sender: FDA-Public Use
  Company Number: US-WYE-H14339710

PATIENT
  Age: 27 Year
  Sex: Female

DRUGS (3)
  1. ADVIL [Suspect]
     Indication: ANALGESIC THERAPY
     Dosage: 2 LIQUI-GELS AS NEEDED, ORAL
     Route: 048
     Dates: end: 20100321
  2. CLARITIN [Concomitant]
  3. MULTI-VITAMINS [Concomitant]

REACTIONS (2)
  - COELIAC DISEASE [None]
  - CONDITION AGGRAVATED [None]
